FAERS Safety Report 17104143 (Version 1)
Quarter: 2019Q4

REPORT INFORMATION
  Report Type: Spontaneous
  Country: JP (occurrence: JP)
  Receive Date: 20191203
  Receipt Date: 20191203
  Transmission Date: 20200122
  Serious: Yes (Other)
  Sender: FDA-Public Use
  Company Number: JP-GLAXOSMITHKLINE-JP2019214870

PATIENT
  Sex: Male

DRUGS (2)
  1. REQUIP [Suspect]
     Active Substance: ROPINIROLE HYDROCHLORIDE
     Indication: PARKINSON^S DISEASE
     Dosage: UNK
     Route: 048
  2. MIRAPEX-LA [Concomitant]
     Dosage: UNK

REACTIONS (7)
  - Pneumonia aspiration [Unknown]
  - Food craving [Unknown]
  - Dementia [Unknown]
  - Hyperphagia [Unknown]
  - Personality change [Unknown]
  - Compulsive shopping [Unknown]
  - Libido increased [Unknown]
